FAERS Safety Report 6356683-2 (Version None)
Quarter: 2009Q3

REPORT INFORMATION
  Report Type: 
  Country: None (occurrence: None)
  Receive Date: 20090915
  Receipt Date: 20090831
  Transmission Date: 20100115
  Serious: Yes (Hospitalization)
  Sender: FDA-Public Use
  Company Number: FR-JNJFOC-20090809474

PATIENT
  Sex: Female

DRUGS (2)
  1. IMODIUM [Suspect]
     Indication: DIARRHOEA
     Route: 048
     Dates: start: 20090726, end: 20090726
  2. ZALDIAR [Suspect]
     Indication: PAIN
     Route: 048

REACTIONS (1)
  - PANCREATITIS ACUTE [None]
